FAERS Safety Report 12988976 (Version 1)
Quarter: 2016Q4

REPORT INFORMATION
  Report Type: Spontaneous
  Country: DE (occurrence: DE)
  Receive Date: 20161201
  Receipt Date: 20161201
  Transmission Date: 20170207
  Serious: Yes (Other)
  Sender: FDA-Public Use
  Company Number: DE-ROCHE-1861494

PATIENT
  Age: 71 Year
  Sex: Male

DRUGS (3)
  1. GAZYVARO [Suspect]
     Active Substance: OBINUTUZUMAB
     Indication: NON-HODGKIN^S LYMPHOMA
     Route: 065
     Dates: start: 20160106, end: 20160106
  2. CHLORAMBUCIL [Concomitant]
     Active Substance: CHLORAMBUCIL
     Route: 065
     Dates: start: 20160106
  3. GAZYVARO [Suspect]
     Active Substance: OBINUTUZUMAB
     Route: 065
     Dates: start: 20160107

REACTIONS (1)
  - Metastatic bronchial carcinoma [Unknown]

NARRATIVE: CASE EVENT DATE: 201605
